FAERS Safety Report 22940950 (Version 4)
Quarter: 2024Q2

REPORT INFORMATION
  Report Type: Spontaneous
  Country: BR (occurrence: BR)
  Receive Date: 20230913
  Receipt Date: 20240620
  Transmission Date: 20240716
  Serious: Yes (Death, Hospitalization, Other)
  Sender: FDA-Public Use
  Company Number: BR-SA-SAC20230911000985

PATIENT

DRUGS (2)
  1. LARONIDASE [Suspect]
     Active Substance: LARONIDASE
     Indication: Mucopolysaccharidosis I
     Dosage: 4 DF, QW (4 VIALS WEEKLY)
     Route: 042
     Dates: start: 20230504
  2. LOSARTAN [Concomitant]
     Active Substance: LOSARTAN
     Indication: Blood pressure abnormal
     Dosage: UNK

REACTIONS (9)
  - Oxygen saturation decreased [Fatal]
  - Hydrocephalus [Fatal]
  - Pyrexia [Fatal]
  - Tracheostomy [Fatal]
  - Gastrostomy [Fatal]
  - Respiratory failure [Fatal]
  - Respiratory disorder [Recovered/Resolved]
  - Dyspnoea [Recovered/Resolved]
  - Fall [Recovering/Resolving]

NARRATIVE: CASE EVENT DATE: 20230101
